FAERS Safety Report 21219712 (Version 2)
Quarter: 2022Q3

REPORT INFORMATION
  Report Type: Spontaneous
  Country: US (occurrence: US)
  Receive Date: 20220817
  Receipt Date: 20220825
  Transmission Date: 20221026
  Serious: Yes (Hospitalization, Other)
  Sender: FDA-Public Use
  Company Number: US-MLMSERVICE-20220801-3708864-1

PATIENT
  Age: 42 Year
  Sex: Female

DRUGS (6)
  1. DULOXETINE [Interacting]
     Active Substance: DULOXETINE
     Indication: Major depression
     Dosage: 60 MILLIGRAM, TWO TIMES A DAY
     Route: 065
  2. NORTRIPTYLINE [Interacting]
     Active Substance: NORTRIPTYLINE
     Indication: Major depression
     Dosage: 150 MILLIGRAM, ONCE A DAY
     Route: 065
  3. METOCLOPRAMIDE [Interacting]
     Active Substance: METOCLOPRAMIDE
     Indication: Vomiting
     Dosage: 10 MILLIGRAM, FOUR TIMES/DAY
     Route: 065
  4. METOCLOPRAMIDE [Interacting]
     Active Substance: METOCLOPRAMIDE
     Dosage: 10 MILLIGRAM, FOUR TIMES/DAY
     Route: 042
  5. OXYGEN [Concomitant]
     Active Substance: OXYGEN
     Indication: Asthma
     Dosage: HOME OXYGEN
     Route: 065
  6. BENZTROPINE [Concomitant]
     Active Substance: BENZTROPINE
     Indication: Product used for unknown indication
     Dosage: UNK
     Route: 065

REACTIONS (5)
  - Oculogyric crisis [Recovered/Resolved]
  - Serotonin syndrome [Recovered/Resolved]
  - Drug interaction [Recovered/Resolved]
  - Hallucination [Unknown]
  - Dystonia [Recovered/Resolved]
